FAERS Safety Report 7652416-8 (Version None)
Quarter: 2011Q3

REPORT INFORMATION
  Report Type: 
  Country: None (occurrence: None)
  Receive Date: 20110803
  Receipt Date: 20110728
  Transmission Date: 20111222
  Serious: Yes (Other)
  Sender: FDA-Public Use
  Company Number: US-ABBOTT-11P-163-0842785-00

PATIENT
  Sex: Female
  Weight: 88.076 kg

DRUGS (10)
  1. PROPRANOLOL [Concomitant]
     Indication: HEADACHE
  2. PROPRANOLOL [Concomitant]
     Indication: PROPHYLAXIS
  3. HUMIRA [Suspect]
     Indication: PSORIATIC ARTHROPATHY
     Dates: start: 20080101, end: 20100101
  4. CYMBALTA [Concomitant]
     Indication: PAIN
  5. FLOMAX [Concomitant]
     Indication: VENTRICULAR SEPTAL DEFECT
  6. NEXIUM [Concomitant]
     Indication: GASTROOESOPHAGEAL REFLUX DISEASE
  7. METFORMIN HYDROCHLORIDE [Concomitant]
     Indication: GLUCOSE TOLERANCE IMPAIRED
  8. NEXIUM [Concomitant]
     Indication: EROSIVE OESOPHAGITIS
  9. LYRICA [Concomitant]
     Indication: PAIN
  10. SIMVASTATIN [Concomitant]
     Indication: HYPERLIPIDAEMIA

REACTIONS (7)
  - CUSHINGOID [None]
  - HYPOPHAGIA [None]
  - ADRENAL INSUFFICIENCY [None]
  - HYPERHIDROSIS [None]
  - VOMITING [None]
  - FEELING ABNORMAL [None]
  - DIARRHOEA [None]
